FAERS Safety Report 5036646-X (Version None)
Quarter: 2006Q2

REPORT INFORMATION
  Report Type: 
  Country: None (occurrence: None)
  Receive Date: 20060616
  Receipt Date: 20060425
  Transmission Date: 20061013
  Serious: No
  Sender: FDA-Public Use
  Company Number: 2006RL000148

PATIENT
  Age: 53 Year
  Sex: Male
  Weight: 77.1115 kg

DRUGS (7)
  1. OMACOR [Suspect]
     Indication: DRUG USE FOR UNKNOWN INDICATION
     Dosage: 2 GM;QD;PO
     Route: 048
     Dates: start: 20051222, end: 20060412
  2. NIASPAN [Concomitant]
  3. ASPIRIN [Concomitant]
  4. PLAVIX [Concomitant]
  5. TOPROL-XL [Concomitant]
  6. BENICAR [Concomitant]
  7. METANX (SIC) [Concomitant]

REACTIONS (4)
  - BURNING SENSATION [None]
  - DRY SKIN [None]
  - PRURITUS [None]
  - RASH PUSTULAR [None]
